FAERS Safety Report 5601165-6 (Version None)
Quarter: 2008Q1

REPORT INFORMATION
  Report Type: 
  Country: None (occurrence: None)
  Receive Date: 20080122
  Receipt Date: 20080122
  Transmission Date: 20080703
  Serious: Yes (Other)
  Sender: FDA-Public Use
  Company Number: None

PATIENT
  Sex: Male
  Weight: 99.7913 kg

DRUGS (1)
  1. LARIAM [Suspect]
     Indication: MALARIA PROPHYLAXIS
     Dates: start: 19930101, end: 19930801

REACTIONS (7)
  - ANXIETY [None]
  - INSOMNIA [None]
  - MENTAL DISORDER [None]
  - MIGRAINE [None]
  - MOOD ALTERED [None]
  - TINNITUS [None]
  - VISUAL DISTURBANCE [None]
